FAERS Safety Report 19239282 (Version 2)
Quarter: 2021Q2

REPORT INFORMATION
  Report Type: Report from Study
  Country: CA (occurrence: CA)
  Receive Date: 20210510
  Receipt Date: 20210512
  Transmission Date: 20210717
  Serious: Yes (Other)
  Sender: FDA-Public Use
  Company Number: CA-JNJFOC-20210507339

PATIENT
  Age: 61 Year
  Sex: Female
  Weight: 71 kg

DRUGS (1)
  1. REMICADE [Suspect]
     Active Substance: INFLIXIMAB
     Indication: COLITIS ULCERATIVE
     Route: 042
     Dates: start: 20150402

REACTIONS (4)
  - Off label use [Unknown]
  - Polyp [Not Recovered/Not Resolved]
  - Transitional cell carcinoma [Unknown]
  - Product use issue [Unknown]
